FAERS Safety Report 25928993 (Version 1)
Quarter: 2025Q4

REPORT INFORMATION
  Report Type: Spontaneous
  Country: US (occurrence: US)
  Receive Date: 20251016
  Receipt Date: 20251016
  Transmission Date: 20260118
  Serious: Yes (Other)
  Sender: COOPERSURGICAL
  Company Number: US-COOPERSURGICAL, INC.-2025CPS007288

PATIENT
  Age: 45 Year
  Sex: Female
  Weight: 120.64 kg

DRUGS (1)
  1. PARAGARD T 380A [Suspect]
     Active Substance: COPPER
     Indication: Contraception
     Dosage: UNK
     Route: 015
     Dates: start: 20130101, end: 20250402

REACTIONS (13)
  - Laparotomy [Recovered/Resolved]
  - Reproductive complication associated with device [Not Recovered/Not Resolved]
  - Infertility female [Not Recovered/Not Resolved]
  - Device breakage [Recovered/Resolved]
  - Foreign body in reproductive tract [Recovered/Resolved]
  - Complication of device removal [Recovered/Resolved]
  - Hormone level abnormal [Unknown]
  - Procedural pain [Recovered/Resolved]
  - Emotional distress [Not Recovered/Not Resolved]
  - Abnormal uterine bleeding [Unknown]
  - Pain [Not Recovered/Not Resolved]
  - Pelvic pain [Unknown]
  - Menstruation irregular [Unknown]

NARRATIVE: CASE EVENT DATE: 20221018
